FAERS Safety Report 10036186 (Version 1)
Quarter: 2014Q1

REPORT INFORMATION
  Report Type: Spontaneous
  Country: US (occurrence: None)
  Receive Date: 20140306
  Receipt Date: 20140306
  Transmission Date: 20141002
  Serious: Yes (Other)
  Sender: FDA-Public Use
  Company Number: 163-21880-13115091

PATIENT
  Age: 57 Year
  Sex: Male
  Weight: 104 kg

DRUGS (8)
  1. REVLIMID [Suspect]
     Indication: PLASMA CELL MYELOMA
     Dosage: 25 MG, 1 IN 1 D, PO
     Route: 048
     Dates: start: 201305
  2. ASPIRIN (ACETYLSALICYLIC ACID) (CHEWABLE TABLET) [Concomitant]
  3. INDOMETHACIN (INDOMETACIN) (CAPSULES) [Concomitant]
  4. ALLOPURINOL (ALLOPURINOL) (TABLETS) [Concomitant]
  5. MIRALAX (MACROGOL) (POWDER) [Concomitant]
  6. IBUPROFEN (IBUPROFEN) (TABLETS) [Concomitant]
  7. OMEPRAZOLE (OMEPRAZOLE) (UNKNOWN) [Concomitant]
  8. AMLODIPINE BESYLATE (AMLODIPINE BESILATE) (UNKNOWN) [Concomitant]

REACTIONS (1)
  - Vitamin D decreased [None]
